FAERS Safety Report 8839470 (Version 1)
Quarter: 2012Q4

REPORT INFORMATION
  Report Type: Spontaneous
  Country: US (occurrence: None)
  Receive Date: 20121011
  Receipt Date: 20121011
  Transmission Date: 20130627
  Serious: Yes (Other)
  Sender: FDA-Public Use
  Company Number: None

PATIENT
  Age: 49 Year
  Sex: Female
  Weight: 81.65 kg

DRUGS (1)
  1. EXALGO [Suspect]
     Dosage: 16mg  1 morning 1 night po
     Route: 048
     Dates: start: 20121003, end: 20121008

REACTIONS (7)
  - Drug effect decreased [None]
  - Breakthrough pain [None]
  - Constipation [None]
  - Vision blurred [None]
  - Pruritus [None]
  - Somnolence [None]
  - Insomnia [None]
